FAERS Safety Report 23760928 (Version 2)
Quarter: 2024Q2

REPORT INFORMATION
  Report Type: Spontaneous
  Country: US (occurrence: US)
  Receive Date: 20240419
  Receipt Date: 20240529
  Transmission Date: 20240717
  Serious: No
  Sender: FDA-Public Use
  Company Number: US-AMGEN-USASP2024078243

PATIENT
  Age: 35 Year
  Sex: Female

DRUGS (2)
  1. AIMOVIG [Suspect]
     Active Substance: ERENUMAB-AOOE
     Indication: Product used for unknown indication
     Dosage: UNK
     Route: 065
  2. AIMOVIG [Suspect]
     Active Substance: ERENUMAB-AOOE
     Dosage: UNK
     Route: 065

REACTIONS (8)
  - Migraine [Unknown]
  - Stress [Unknown]
  - Discomfort [Unknown]
  - Incorrect disposal of product [Unknown]
  - Inappropriate schedule of product administration [Unknown]
  - Device difficult to use [Unknown]
  - Accidental exposure to product [Unknown]
  - Drug dose omission by device [Unknown]

NARRATIVE: CASE EVENT DATE: 20240316
